FAERS Safety Report 24294443 (Version 3)
Quarter: 2024Q4

REPORT INFORMATION
  Report Type: Spontaneous
  Country: PT (occurrence: PT)
  Receive Date: 20240906
  Receipt Date: 20241014
  Transmission Date: 20250115
  Serious: Yes (Death, Life-Threatening, Hospitalization, Other)
  Sender: SANOFI AVENTIS
  Company Number: PT-EMA-DD-20240812-7482661-082819

PATIENT
  Age: 71 Year
  Sex: Female

DRUGS (3)
  1. CLOPIDOGREL BISULFATE [Interacting]
     Active Substance: CLOPIDOGREL BISULFATE
     Indication: Cardiac failure
     Dosage: 75 MG, QD
  2. ENOXAPARIN SODIUM [Interacting]
     Active Substance: ENOXAPARIN SODIUM
     Indication: Cardiac failure
     Dosage: 1 MG/KG, Q12H
     Route: 058
  3. FUROSEMIDE [Concomitant]
     Active Substance: FUROSEMIDE
     Indication: Cardiac failure
     Dosage: UNK
     Route: 042

REACTIONS (10)
  - Cardio-respiratory arrest [Fatal]
  - Septic shock [Fatal]
  - Abdominal sepsis [Fatal]
  - Abdominal wall haematoma [Fatal]
  - Abdominal pain lower [Fatal]
  - Abdominal mass [Fatal]
  - Intra-abdominal haemorrhage [Fatal]
  - Rectal haemorrhage [Fatal]
  - Pyrexia [Fatal]
  - Abdominal pain [Fatal]
